FAERS Safety Report 5978807-9 (Version None)
Quarter: 2008Q4

REPORT INFORMATION
  Report Type: 
  Country: None (occurrence: None)
  Receive Date: 20081204
  Receipt Date: 20081126
  Transmission Date: 20090506
  Serious: Yes (Hospitalization)
  Sender: FDA-Public Use
  Company Number: PHBS2008US06480

PATIENT
  Age: 53 Year
  Sex: Female

DRUGS (6)
  1. OCTREOTIDE ACETATE [Suspect]
  2. CISPLATIN [Concomitant]
     Dosage: 50 MG
  3. DOXORUBICIN HCL [Concomitant]
     Dosage: 30 MG
  4. MITOMYCIN [Concomitant]
     Dosage: 20 MG
  5. IODIXANOL [Concomitant]
     Dosage: 3200 MG
  6. MICRON EMBOSPHERES [Concomitant]

REACTIONS (10)
  - ABDOMINAL TENDERNESS [None]
  - CONVULSION [None]
  - EJECTION FRACTION DECREASED [None]
  - ENDOTRACHEAL INTUBATION [None]
  - HYPOTENSION [None]
  - HYPOXIA [None]
  - MENTAL STATUS CHANGES [None]
  - PNEUMATOSIS INTESTINALIS [None]
  - PULMONARY HYPERTENSION [None]
  - SOMNOLENCE [None]
